FAERS Safety Report 7111440-4 (Version None)
Quarter: 2010Q4

REPORT INFORMATION
  Report Type: 
  Country: None (occurrence: None)
  Receive Date: 20101118
  Receipt Date: 20101111
  Transmission Date: 20110411
  Serious: Yes (Hospitalization)
  Sender: FDA-Public Use
  Company Number: GB-PFIZER INC-2010131466

PATIENT
  Age: 26 Year
  Sex: Female
  Weight: 49.4 kg

DRUGS (13)
  1. METHYLPREDNISOLONE [Suspect]
  2. PREDNISOLONE [Suspect]
     Dosage: UNK
     Dates: start: 20090309
  3. PARACETAMOL [Suspect]
     Dosage: UNK
     Dates: start: 20090309, end: 20090420
  4. MUPIROCIN [Suspect]
     Dosage: UNK
     Dates: start: 20090309, end: 20090420
  5. LACTULOSE [Suspect]
     Dosage: UNK
     Dates: start: 20090309, end: 20090420
  6. SENNA [Suspect]
     Dosage: UNK
     Dates: start: 20090309, end: 20090420
  7. SIMPLE LINCTUS [Suspect]
     Dosage: UNK
     Dates: start: 20090309, end: 20090420
  8. AZATHIOPRINE [Suspect]
     Indication: SYSTEMIC LUPUS ERYTHEMATOSUS
     Dosage: 50 MG, 1X/DAY
     Dates: start: 20090309
  9. CHLORHEXIDINE [Suspect]
     Dosage: UNK
     Dates: start: 20090309, end: 20090420
  10. ALENDRONIC ACID [Suspect]
     Indication: SYSTEMIC LUPUS ERYTHEMATOSUS
     Dosage: 70 MG, DAILY
  11. HYDROXYCHLOROQUINE [Suspect]
     Indication: SYSTEMIC LUPUS ERYTHEMATOSUS
     Dosage: 200 MG, 1X/DAY
     Dates: start: 20090318
  12. ACETYLSALICYLIC ACID [Concomitant]
  13. FOLIC ACID [Concomitant]

REACTIONS (2)
  - SYSTEMIC LUPUS ERYTHEMATOSUS [None]
  - URINARY TRACT INFECTION [None]
